FAERS Safety Report 9634182 (Version 2)
Quarter: 2013Q4

REPORT INFORMATION
  Report Type: Report from Study
  Country: US (occurrence: US)
  Receive Date: 20131021
  Receipt Date: 20131122
  Transmission Date: 20140711
  Serious: Yes (Death)
  Sender: FDA-Public Use
  Company Number: US-OTSUKA-US-2013-11904

PATIENT
  Age: 64 Year
  Sex: Male
  Weight: 95 kg

DRUGS (7)
  1. BUSULFEX [Suspect]
     Indication: HAEMATOLOGICAL MALIGNANCY
     Dosage: 400 X2, 651 TIMES 2
     Route: 042
     Dates: start: 20060907, end: 20060910
  2. BUSULFEX [Suspect]
     Indication: CHRONIC MYELOMONOCYTIC LEUKAEMIA
  3. FLUDARABINE [Suspect]
     Indication: HAEMATOLOGICAL MALIGNANCY
     Dosage: 65, 5XDAY
     Route: 042
     Dates: start: 20060906, end: 20060910
  4. FLUDARABINE [Suspect]
     Indication: CHRONIC MYELOMONOCYTIC LEUKAEMIA
  5. ALEMTUZUMAB [Suspect]
     Dosage: 20 MG MILLIGRAM(S), UNK
     Route: 042
     Dates: start: 20060906, end: 20060910
  6. ALEMTUZUMAB [Suspect]
     Dosage: 20 MG MILLIGRAM(S), UNK
     Dates: start: 20060906, end: 20060910
  7. CLONAZEPAM [Suspect]
     Indication: CONVULSION
     Dosage: UNK

REACTIONS (1)
  - Death [Fatal]
